FAERS Safety Report 11520173 (Version 1)
Quarter: 2015Q3

REPORT INFORMATION
  Report Type: Spontaneous
  Country: US (occurrence: US)
  Receive Date: 20150918
  Receipt Date: 20150918
  Transmission Date: 20151125
  Serious: No
  Sender: FDA-Public Use
  Company Number: US-RB-073303-15

PATIENT

DRUGS (2)
  1. INSULIN [Concomitant]
     Active Substance: INSULIN NOS
     Indication: DIABETES MELLITUS
     Dosage: DOSE UNK, UNITS UNK, FREQUENCY UNK
     Route: 065
  2. MUCINEX [Suspect]
     Active Substance: GUAIFENESIN
     Indication: NASAL CONGESTION
     Dosage: 600MG. PATIENT TOOK 1 OR 2 TABLETS EVERY 12 HOURS AND LAST USED THE DRUG ON 03/JAN/2015, 10:00 AM.,F
     Route: 065
     Dates: end: 20150103

REACTIONS (3)
  - Fatigue [Recovered/Resolved]
  - Incorrect drug administration duration [Recovered/Resolved]
  - Somnolence [Recovered/Resolved]

NARRATIVE: CASE EVENT DATE: 201412
